FAERS Safety Report 10676681 (Version 1)
Quarter: 2014Q4

REPORT INFORMATION
  Report Type: Spontaneous
  Country: US (occurrence: US)
  Receive Date: 20141226
  Receipt Date: 20141226
  Transmission Date: 20150529
  Serious: Yes (Hospitalization)
  Sender: FDA-Public Use
  Company Number: US-UCBSA-2014022356

PATIENT
  Age: 58 Year
  Sex: Female

DRUGS (2)
  1. CIMZIA [Suspect]
     Active Substance: CERTOLIZUMAB PEGOL
     Dosage: 400 MG, EV 4 WEEKS; (AFTER INITIAL DOSING)
     Dates: start: 20141205
  2. CIMZIA [Suspect]
     Active Substance: CERTOLIZUMAB PEGOL
     Indication: RHEUMATOID ARTHRITIS
     Dosage: UNKNOWN DOSE (WEEK 0)
     Dates: start: 2014, end: 2014

REACTIONS (4)
  - Overdose [Unknown]
  - Pneumonia aspiration [Not Recovered/Not Resolved]
  - Vomiting [Not Recovered/Not Resolved]
  - Aspiration [Not Recovered/Not Resolved]

NARRATIVE: CASE EVENT DATE: 20141217
